FAERS Safety Report 22519488 (Version 1)
Quarter: 2023Q2

REPORT INFORMATION
  Report Type: Spontaneous
  Country: ZA (occurrence: ZA)
  Receive Date: 20230605
  Receipt Date: 20230605
  Transmission Date: 20230722
  Serious: Yes (Other)
  Sender: FDA-Public Use
  Company Number: ZA-SA-SAC20230602000110

PATIENT
  Age: 32 Year
  Sex: Male

DRUGS (7)
  1. ARAVA [Suspect]
     Active Substance: LEFLUNOMIDE
     Dosage: 20 MG; QD
     Route: 065
     Dates: start: 201310
  2. DICLOFENAC [Suspect]
     Active Substance: DICLOFENAC
     Dosage: 100 MG, QD
     Dates: start: 201303
  3. SULFASALAZINE [Suspect]
     Active Substance: SULFASALAZINE
     Dosage: 500 MG, BID
     Dates: start: 201211
  4. METHOTREXATE [Suspect]
     Active Substance: METHOTREXATE
     Dosage: 20 MG, QW
     Dates: start: 201211
  5. ENBREL [Suspect]
     Active Substance: ETANERCEPT
     Dosage: 50 MG, QW
     Dates: start: 20161015
  6. HUMIRA [Suspect]
     Active Substance: ADALIMUMAB
     Dosage: UNK
  7. CODEINE PHOSPHATE\DICLOFENAC SODIUM [Suspect]
     Active Substance: CODEINE PHOSPHATE\DICLOFENAC SODIUM
     Dosage: 100 MG, QD

REACTIONS (6)
  - Glaucoma [Unknown]
  - Obesity [Unknown]
  - Dyslipidaemia [Unknown]
  - Glucose tolerance impaired [Unknown]
  - Gastrooesophageal reflux disease [Unknown]
  - Acne pustular [Unknown]
